FAERS Safety Report 8342036 (Version 3)
Quarter: 2013Q1

REPORT INFORMATION
  Report Type: Report from Study
  Country: AU (occurrence: AU)
  Receive Date: 20120118
  Receipt Date: 20130201
  Transmission Date: 20140127
  Serious: Yes (Hospitalization)
  Sender: FDA-Public Use
  Company Number: AU-GLAXOSMITHKLINE-B0606703A

PATIENT
  Age: 45 Year
  Sex: Female
  Weight: 71 kg

DRUGS (10)
  1. LAPATINIB [Suspect]
     Indication: BREAST CANCER METASTATIC
     Dosage: 1250MG PER DAY
     Route: 048
     Dates: start: 20091106
  2. PACLITAXEL [Suspect]
     Indication: BREAST CANCER METASTATIC
     Dosage: 110MG WEEKLY
     Route: 042
     Dates: start: 20091105
  3. MORPHINE SULPHATE [Concomitant]
     Indication: PAIN
     Dates: start: 20091022
  4. MORPHINE HYDROCHLORIDE [Concomitant]
     Indication: PAIN
     Dates: start: 20091022
  5. VENLAFAXINE HYDROCHLORIDE [Concomitant]
     Indication: HYPERHIDROSIS
     Dates: start: 2006
  6. ONDANSETRON [Concomitant]
     Indication: NAUSEA
     Dates: start: 20091104
  7. LACTULOSE [Concomitant]
     Indication: CONSTIPATION
     Dates: start: 20091030
  8. ESOMEPRAZOLE [Concomitant]
     Indication: DYSPEPSIA
     Dates: start: 20091030
  9. NAPROSYN [Concomitant]
     Indication: PAIN
     Dates: start: 20091030
  10. GASTROLYTE [Concomitant]
     Indication: DYSPEPSIA
     Dates: start: 20091030

REACTIONS (3)
  - Vomiting [Recovered/Resolved]
  - Mucosal inflammation [Recovered/Resolved]
  - Neutropenia [Recovered/Resolved]
